FAERS Safety Report 7392622-3 (Version None)
Quarter: 2011Q2

REPORT INFORMATION
  Report Type: 
  Country: None (occurrence: None)
  Receive Date: 20110404
  Receipt Date: 20110329
  Transmission Date: 20111010
  Serious: Yes (Hospitalization, Other)
  Sender: FDA-Public Use
  Company Number: BR-ABBOTT-10P-020-0660445-00

PATIENT
  Sex: Female
  Weight: 74 kg

DRUGS (6)
  1. VENLAFAXINE [Concomitant]
     Indication: LABYRINTHITIS
     Route: 048
  2. LEVOTHYROXINE SODIUM [Concomitant]
     Indication: PRODUCT USED FOR UNKNOWN INDICATION
     Route: 048
  3. TCAPITAM [Concomitant]
     Indication: PRODUCT USED FOR UNKNOWN INDICATION
     Route: 048
  4. DOMPERIDONE [Concomitant]
     Indication: GASTRIC DISORDER
     Route: 048
  5. HUMIRA [Suspect]
     Indication: RHEUMATOID ARTHRITIS
     Route: 058
  6. CLONAZEPAM [Concomitant]
     Indication: SLEEP DISORDER THERAPY
     Route: 048

REACTIONS (11)
  - CHEST PAIN [None]
  - BLOOD URINE PRESENT [None]
  - PULMONARY EMBOLISM [None]
  - WEIGHT INCREASED [None]
  - THROMBOSIS [None]
  - SYNCOPE [None]
  - BURNING SENSATION [None]
  - CYSTITIS [None]
  - INGUINAL HERNIA [None]
  - MUSCULOSKELETAL STIFFNESS [None]
  - HAEMATOCHEZIA [None]
